FAERS Safety Report 13676208 (Version 1)
Quarter: 2017Q2

REPORT INFORMATION
  Report Type: Report from Study
  Country: BR (occurrence: BR)
  Receive Date: 20170622
  Receipt Date: 20170622
  Transmission Date: 20170830
  Serious: Yes (Hospitalization)
  Sender: FDA-Public Use
  Company Number: BR-UCBSA-2017024017

PATIENT
  Age: 3 Year
  Sex: Female

DRUGS (3)
  1. LEVETIRACETAM. [Suspect]
     Active Substance: LEVETIRACETAM
     Dosage: DOSE ADJUSTMENT
     Route: 048
  2. LEVETIRACETAM. [Suspect]
     Active Substance: LEVETIRACETAM
     Dosage: 3 ML, 3X/DAY (TID)
     Route: 048
     Dates: end: 201704
  3. LEVETIRACETAM. [Suspect]
     Active Substance: LEVETIRACETAM
     Indication: EPILEPSY
     Dosage: 1 ML, 3X/DAY (TID)
     Route: 048
     Dates: start: 20160915

REACTIONS (2)
  - Brain operation [Unknown]
  - Off label use [Unknown]

NARRATIVE: CASE EVENT DATE: 20160915
